FAERS Safety Report 12280412 (Version 1)
Quarter: 2016Q2

REPORT INFORMATION
  Report Type: Spontaneous
  Country: US (occurrence: US)
  Receive Date: 20160419
  Receipt Date: 20160419
  Transmission Date: 20160815
  Serious: Yes (Hospitalization)
  Sender: FDA-Public Use
  Company Number: US-BEH-2016061242

PATIENT
  Sex: Female
  Weight: 56 kg

DRUGS (18)
  1. DRUG USED IN DIABETES [Concomitant]
     Active Substance: UNSPECIFIED INGREDIENT
  2. ASPIRIN EC [Concomitant]
     Active Substance: ASPIRIN
  3. FOLIC ACID. [Concomitant]
     Active Substance: FOLIC ACID
  4. DIPHENHYDRAMINE. [Concomitant]
     Active Substance: DIPHENHYDRAMINE
  5. EFFEXOR [Concomitant]
     Active Substance: VENLAFAXINE HYDROCHLORIDE
  6. PLAQUENIL [Concomitant]
     Active Substance: HYDROXYCHLOROQUINE SULFATE
  7. CRESTOR [Concomitant]
     Active Substance: ROSUVASTATIN CALCIUM
  8. VITAMIN D [Concomitant]
     Active Substance: CHOLECALCIFEROL
  9. HIZENTRA [Suspect]
     Active Substance: HUMAN IMMUNOGLOBULIN G
     Indication: IMMUNODEFICIENCY
  10. HIZENTRA [Suspect]
     Active Substance: HUMAN IMMUNOGLOBULIN G
  11. HIZENTRA [Suspect]
     Active Substance: HUMAN IMMUNOGLOBULIN G
     Route: 058
     Dates: start: 20120217
  12. VITAMIN B12 [Concomitant]
     Active Substance: CYANOCOBALAMIN
  13. ANTIVIRALS NOS [Concomitant]
     Active Substance: UNSPECIFIED INGREDIENT
  14. EPIPEN [Concomitant]
     Active Substance: EPINEPHRINE
  15. PROTONIX [Concomitant]
     Active Substance: PANTOPRAZOLE SODIUM
  16. BENZOCAINE. [Concomitant]
     Active Substance: BENZOCAINE
  17. METHOTREXATE [Concomitant]
     Active Substance: METHOTREXATE
  18. PREDNISONE. [Concomitant]
     Active Substance: PREDNISONE

REACTIONS (4)
  - Asthenia [Unknown]
  - Abasia [Unknown]
  - Fatigue [Unknown]
  - Urinary tract infection [Unknown]
